FAERS Safety Report 4503757-4 (Version None)
Quarter: 2004Q4

REPORT INFORMATION
  Report Type: 
  Country: None (occurrence: None)
  Receive Date: 20041117
  Receipt Date: 20030605
  Transmission Date: 20050328
  Serious: Yes (Hospitalization)
  Sender: FDA-Public Use
  Company Number: US-MERCK-0306USA00808

PATIENT
  Age: 50 Year
  Sex: Female

DRUGS (5)
  1. VIOXX [Suspect]
     Indication: ARTHRITIS
     Route: 048
     Dates: start: 19990901, end: 20010901
  2. ALPRAZOLAM [Concomitant]
     Route: 065
  3. PRILOSEC [Concomitant]
     Route: 065
  4. ESTRATEST [Concomitant]
     Route: 065
  5. PAXIL [Concomitant]
     Route: 065

REACTIONS (37)
  - ABDOMINAL DISTENSION [None]
  - ABDOMINAL PAIN [None]
  - ABDOMINAL PAIN UPPER [None]
  - ARTHRALGIA [None]
  - BLOOD CHOLESTEROL INCREASED [None]
  - BRONCHITIS [None]
  - CHEST DISCOMFORT [None]
  - CHEST PAIN [None]
  - CHRONIC OBSTRUCTIVE AIRWAYS DISEASE [None]
  - CONJUNCTIVITIS [None]
  - DEPRESSION [None]
  - DIARRHOEA [None]
  - DIVERTICULITIS [None]
  - DIZZINESS [None]
  - EJECTION FRACTION DECREASED [None]
  - HAEMATOMA [None]
  - HYPERTENSION [None]
  - INSOMNIA [None]
  - LIPOMA [None]
  - LOBAR PNEUMONIA [None]
  - MALAISE [None]
  - MYALGIA [None]
  - NAUSEA [None]
  - NEPHROLITHIASIS [None]
  - NODULE [None]
  - OSTEOPENIA [None]
  - PAIN [None]
  - POLYTRAUMATISM [None]
  - PRODUCTIVE COUGH [None]
  - RASH [None]
  - SINUSITIS [None]
  - SKIN LESION [None]
  - SYNCOPE [None]
  - UPPER RESPIRATORY TRACT INFECTION [None]
  - URINARY TRACT INFECTION [None]
  - VOMITING [None]
  - WEIGHT INCREASED [None]
